FAERS Safety Report 5878445-2 (Version None)
Quarter: 2008Q3

REPORT INFORMATION
  Report Type: 
  Country: None (occurrence: None)
  Receive Date: 20080911
  Receipt Date: 20071108
  Transmission Date: 20090109
  Serious: No
  Sender: FDA-Public Use
  Company Number: US-AMGEN-KDL251819

PATIENT
  Sex: Male

DRUGS (1)
  1. NEUPOGEN [Suspect]
     Indication: CHEMOTHERAPY
     Dates: start: 20071029

REACTIONS (2)
  - ARTHRALGIA [None]
  - PAIN [None]
